FAERS Safety Report 21338457 (Version 1)
Quarter: 2022Q3

REPORT INFORMATION
  Report Type: Spontaneous
  Country: US (occurrence: US)
  Receive Date: 20220915
  Receipt Date: 20220915
  Transmission Date: 20221027
  Serious: Yes (Other)
  Sender: FDA-Public Use
  Company Number: US-SA-SAC20220914001332

PATIENT
  Age: 43 Year
  Sex: Female

DRUGS (1)
  1. ZANTAC [Suspect]
     Active Substance: RANITIDINE HYDROCHLORIDE
     Indication: Dyspepsia
     Dosage: DOSE-UNKNOWN AT THIS TIME, QD
     Dates: start: 201401, end: 202001

REACTIONS (1)
  - Bladder cancer stage II [Recovered/Resolved]

NARRATIVE: CASE EVENT DATE: 20200901
